FAERS Safety Report 10234837 (Version 1)
Quarter: 2014Q1

REPORT INFORMATION
  Report Type: Spontaneous
  Country: US (occurrence: None)
  Receive Date: 20140306
  Receipt Date: 20140306
  Transmission Date: 20141002
  Serious: Yes (Other)
  Sender: FDA-Public Use
  Company Number: 163-21880-13044218

PATIENT
  Age: 64 Year
  Sex: Male
  Weight: 117.94 kg

DRUGS (25)
  1. REVLIMID (LENALIDOMIDE) (25 MILLIGRAM, CAPSULES) [Suspect]
     Indication: PLASMA CELL MYELOMA
     Route: 048
     Dates: start: 201008
  2. DEXAMETHASONE (DEXAMETHASONE) [Concomitant]
  3. MULTIVITAMINS (MULTIVITAMINS) [Concomitant]
  4. CALCIUM (CALCIUM) [Concomitant]
  5. VITAMIN C (ASCORBIC ACID) [Concomitant]
  6. VITAMIN B1 (THIAMINE HYDROCHLORIDE) [Concomitant]
  7. VITAMIN B6 (PYRIDOXINE HYDROCHLORIDE) [Concomitant]
  8. DIGOXIN (DIGOXIN) [Concomitant]
  9. DILAUDID (HYDROMORPHONE HYDROCHLORIDE) [Concomitant]
  10. GLUCOPHAGE (METFORMIN HYDROCHLORIDE) [Concomitant]
  11. DIOVAN (VALSARTAN) [Concomitant]
  12. NEURONTIN (GABAPENTIN) [Concomitant]
  13. TRICOR (FENOFIBRATE) [Concomitant]
  14. ECOTRIN (ACETYLSALICYLIC ACID) [Concomitant]
  15. LASIX (FUROSEMIDE) [Concomitant]
  16. LAXATIVE (SENNOSIDE A+B) [Concomitant]
  17. IRON (IRON) [Concomitant]
  18. LOPRESSOR (METOPROLOL TARTRATE) [Concomitant]
  19. ZOCOR (SIMVASTATIN) [Concomitant]
  20. NORVASC (AMLODIPINE BESILATE) [Concomitant]
  21. NITRO (GLYCERYL TRINITRATE) [Concomitant]
  22. LIDODERM (LIDOCAINE) [Concomitant]
  23. DALMANE (FLURAZEPAM HYDROCHLORIDE) [Concomitant]
  24. VELCADE (BORTEZOMIB) [Concomitant]
  25. ZOMETA (ZOLEDRONIC ACID) [Concomitant]

REACTIONS (3)
  - Pancytopenia [None]
  - Thrombosis [None]
  - Atrial fibrillation [None]
